FAERS Safety Report 11696578 (Version 1)
Quarter: 2015Q4

REPORT INFORMATION
  Report Type: Spontaneous
  Country: US (occurrence: None)
  Receive Date: 20151104
  Receipt Date: 20151104
  Transmission Date: 20160304
  Serious: No
  Sender: FDA-Public Use
  Company Number: US-MDT-ADR-2015-02074

PATIENT
  Age: 76 Year
  Sex: Male

DRUGS (2)
  1. HYDROMORPHONE 9MG/ML [Suspect]
     Active Substance: HYDROMORPHONE
     Dosage: 1.2494MG/DAY
  2. BACLOFEN INTRATHECAL 200MCG/ML [Suspect]
     Active Substance: BACLOFEN
     Indication: SPINAL PAIN
     Dosage: 41.65MCG/DAY

REACTIONS (1)
  - Pain [None]
